FAERS Safety Report 13776463 (Version 10)
Quarter: 2020Q3

REPORT INFORMATION
  Report Type: Report from Study
  Country: CA (occurrence: CA)
  Receive Date: 20170720
  Receipt Date: 20200817
  Transmission Date: 20201102
  Serious: Yes (Hospitalization)
  Sender: FDA-Public Use
  Company Number: CA-ACTELION-A-US2017-155264

PATIENT
  Age: 43 Year
  Sex: Female

DRUGS (13)
  1. DILAUDID [Concomitant]
     Active Substance: HYDROMORPHONE HYDROCHLORIDE
  2. ZOFRAN [Concomitant]
     Active Substance: ONDANSETRON HYDROCHLORIDE
  3. CIPRALEX [Concomitant]
     Active Substance: ESCITALOPRAM OXALATE
  4. GRAVOL [Concomitant]
     Active Substance: DIMENHYDRINATE
  5. ALLOPURINOL. [Concomitant]
     Active Substance: ALLOPURINOL
  6. OPSUMIT [Suspect]
     Active Substance: MACITENTAN
     Indication: PULMONARY ARTERIAL HYPERTENSION
     Dosage: 10 MG, QD
     Route: 048
     Dates: start: 20170331
  7. HYDROMORPH [Concomitant]
     Active Substance: HYDROMORPHONE
  8. PROBIOTIC [Concomitant]
     Active Substance: PROBIOTICS NOS
  9. ADCIRCA [Concomitant]
     Active Substance: TADALAFIL
  10. XARELTO [Concomitant]
     Active Substance: RIVAROXABAN
  11. PANTOLOC [Concomitant]
     Active Substance: PANTOPRAZOLE SODIUM
  12. IMOVANE [Concomitant]
     Active Substance: ZOPICLONE
  13. MAGNESIUM [Concomitant]
     Active Substance: MAGNESIUM

REACTIONS (13)
  - Dyspnoea [Recovering/Resolving]
  - Sepsis [Recovering/Resolving]
  - Catheter site infection [Recovering/Resolving]
  - Eye swelling [Not Recovered/Not Resolved]
  - Hospitalisation [Unknown]
  - Kidney infection [Recovering/Resolving]
  - Nasal discomfort [Not Recovered/Not Resolved]
  - Back pain [Not Recovered/Not Resolved]
  - Pyrexia [Recovering/Resolving]
  - Lower respiratory tract infection [Unknown]
  - Thrombosis [Recovering/Resolving]
  - Hypotension [Recovering/Resolving]
  - Pneumonia [Recovered/Resolved]

NARRATIVE: CASE EVENT DATE: 20170711
